FAERS Safety Report 6342746-4 (Version None)
Quarter: 2009Q3

REPORT INFORMATION
  Report Type: 
  Country: None (occurrence: None)
  Receive Date: 20090908
  Receipt Date: 20070731
  Transmission Date: 20100115
  Serious: Yes (Other)
  Sender: FDA-Public Use
  Company Number: CN-ROCHE-587382

PATIENT
  Age: 20 Year
  Sex: Female

DRUGS (11)
  1. TAMIFLU [Suspect]
     Indication: AVIAN INFLUENZA
     Route: 065
  2. AZITHROMYCIN [Concomitant]
     Indication: BACTERIAL INFECTION
  3. LEVOFLOXACIN [Concomitant]
     Indication: BACTERIAL INFECTION
  4. CEFOPERAZONE SODIUM/SULBACTAM SODIUM [Concomitant]
     Indication: BACTERIAL INFECTION
  5. PIPERACILLIN [Concomitant]
     Indication: BACTERIAL INFECTION
  6. 1 CONCOMITANT DRUG [Concomitant]
     Indication: BACTERIAL INFECTION
     Dosage: CEFTIOFUR
  7. TINIDAZOLE [Concomitant]
     Indication: BACTERIAL INFECTION
  8. VANCOMYCIN [Concomitant]
     Indication: BACTERIAL INFECTION
  9. 1 CONCOMITANT DRUG [Concomitant]
     Dosage: GAMMA GLOBULIN
  10. URBASON [Concomitant]
     Indication: BACTERIAL INFECTION
     Dosage: 200MG, 80MG AND 160MG ADMINISTERED, 40-20MG WAS ADMINISTERED FROM THE 12TH TO THE 15TH
  11. ITRACONAZOLE [Concomitant]
     Indication: FUNGAL INFECTION

REACTIONS (1)
  - ABORTION SPONTANEOUS [None]
